FAERS Safety Report 7877065-8 (Version None)
Quarter: 2011Q4

REPORT INFORMATION
  Report Type: 
  Country: None (occurrence: None)
  Receive Date: 20111031
  Receipt Date: 20111025
  Transmission Date: 20120403
  Serious: Yes (Other)
  Sender: FDA-Public Use
  Company Number: PHHY2011JP82733

PATIENT
  Age: 86 Year
  Sex: Male
  Weight: 51 kg

DRUGS (5)
  1. RADIOTHERAPY [Concomitant]
     Indication: OESOPHAGEAL ADENOCARCINOMA
     Dosage: 60 GY, UNK
  2. FLUOROURACIL [Suspect]
     Indication: OESOPHAGEAL ADENOCARCINOMA
     Dosage: 250 MG/KG, UNK
  3. FLUOROURACIL [Suspect]
     Dosage: 500 MG/KG, UNK
  4. NEDAPLATIN [Suspect]
     Dosage: 10 MG/KG, UNK
  5. NEDAPLATIN [Suspect]
     Indication: OESOPHAGEAL ADENOCARCINOMA
     Dosage: 5 MG/KG, UNK

REACTIONS (6)
  - PLEURAL EFFUSION [None]
  - PLEURISY [None]
  - THROMBOCYTOPENIA [None]
  - OEDEMA [None]
  - LEUKOPENIA [None]
  - PERICARDITIS [None]
